FAERS Safety Report 13511705 (Version 2)
Quarter: 2018Q1

REPORT INFORMATION
  Report Type: Spontaneous
  Country: DE (occurrence: DE)
  Receive Date: 20170504
  Receipt Date: 20180131
  Transmission Date: 20180508
  Serious: Yes (Hospitalization)
  Sender: FDA-Public Use
  Company Number: DE-MYLANLABS-2017M1026860

PATIENT
  Age: 56 Year
  Sex: Male

DRUGS (6)
  1. CLOZAPINE. [Suspect]
     Active Substance: CLOZAPINE
     Dosage: 425 MG, QD
     Dates: start: 20150928
  2. VALPROAT [Interacting]
     Active Substance: VALPROATE SODIUM
     Dosage: 2000 MG, QD
  3. CLOZAPINE. [Suspect]
     Active Substance: CLOZAPINE
     Dosage: 450 MG, QD
     Dates: end: 20150928
  4. DIPIPERON [Interacting]
     Active Substance: PIPAMPERONE
     Dosage: 60 MG, QD
  5. HALDOL [Interacting]
     Active Substance: HALOPERIDOL
     Dosage: 3 MG, QD
  6. PANTOPRAZOL ABZ PROTECT [Concomitant]
     Active Substance: PANTOPRAZOLE SODIUM
     Dosage: 40 MG, QD

REACTIONS (2)
  - Pleurothotonus [Recovered/Resolved]
  - Parkinsonism [Recovered/Resolved]

NARRATIVE: CASE EVENT DATE: 20150929
